FAERS Safety Report 4704513-4 (Version None)
Quarter: 2005Q2

REPORT INFORMATION
  Report Type: 
  Country: None (occurrence: None)
  Receive Date: 20050629
  Receipt Date: 20050622
  Transmission Date: 20051028
  Serious: Yes (Other)
  Sender: FDA-Public Use
  Company Number: 215540

PATIENT
  Age: 55 Year
  Sex: Male
  Weight: 61.8 kg

DRUGS (9)
  1. RITUXAN [Suspect]
     Indication: NON-HODGKIN'S LYMPHOMA
     Dosage: 600 MG, Q3W, INTRAVENOUS
     Route: 042
     Dates: start: 20020322, end: 20020524
  2. ETOPOSIDE [Suspect]
     Indication: NON-HODGKIN'S LYMPHOMA
     Dosage: 150 MG
     Dates: start: 20020325, end: 20020509
  3. CYCLOPHOSPHAMIDE [Suspect]
     Indication: NON-HODGKIN'S LYMPHOMA
     Dosage: 100 MG, X3
     Dates: start: 20020325, end: 20020507
  4. CYTARABINE [Suspect]
     Indication: NON-HODGKIN'S LYMPHOMA
     Dates: start: 20020326
  5. DECADRON [Suspect]
     Indication: NON-HODGKIN'S LYMPHOMA
     Dosage: 40 MG, X2
     Dates: start: 20020325, end: 20020507
  6. FAMOTIDINE [Concomitant]
  7. ALLOPURINOL [Concomitant]
  8. LOXONIN (LOXOPROFEN SODIUM) [Concomitant]
  9. POLARAMINE [Concomitant]

REACTIONS (2)
  - NEUTROPENIA [None]
  - WHITE BLOOD CELL COUNT DECREASED [None]
